FAERS Safety Report 19172603 (Version 1)
Quarter: 2021Q2

REPORT INFORMATION
  Report Type: Spontaneous
  Country: US (occurrence: US)
  Receive Date: 20210422
  Receipt Date: 20210422
  Transmission Date: 20210717
  Serious: No
  Sender: FDA-Public Use
  Company Number: None

PATIENT
  Age: 41 Year
  Sex: Female
  Weight: 58.5 kg

DRUGS (1)
  1. ARM + HAMMER ADVANCEWHITE TOOTHPASTE [Suspect]
     Active Substance: SODIUM FLUORIDE
     Indication: TOOTH DISCOLOURATION
     Dosage: ?          OTHER ROUTE:TOOTHPASTE?

REACTIONS (6)
  - Rash [None]
  - Hypoaesthesia oral [None]
  - Lip swelling [None]
  - Burning sensation [None]
  - Swollen tongue [None]
  - Gingival pain [None]

NARRATIVE: CASE EVENT DATE: 20200911
